FAERS Safety Report 4388214-0 (Version None)
Quarter: 2004Q2

REPORT INFORMATION
  Report Type: 
  Country: None (occurrence: None)
  Receive Date: 20040629
  Receipt Date: 20040629
  Transmission Date: 20050107
  Serious: Yes (Other)
  Sender: FDA-Public Use
  Company Number: None

PATIENT
  Age: 37 Year
  Sex: Female
  Weight: 121.1104 kg

DRUGS (2)
  1. ESTRACE [Suspect]
     Indication: ARTIFICIAL MENOPAUSE
     Dosage: 2 MG PO QD
     Route: 048
  2. ESTRACE [Suspect]
     Indication: CONVULSION
     Dosage: 2 MG PO QD
     Route: 048

REACTIONS (3)
  - CONDITION AGGRAVATED [None]
  - MIGRAINE [None]
  - PHARMACEUTICAL PRODUCT COMPLAINT [None]
